FAERS Safety Report 7699416-X (Version None)
Quarter: 2011Q3

REPORT INFORMATION
  Report Type: 
  Country: None (occurrence: None)
  Receive Date: 20110820
  Receipt Date: 20101222
  Transmission Date: 20111222
  Serious: Yes (Death, Hospitalization)
  Sender: FDA-Public Use
  Company Number: PHHY2010KR87761

PATIENT
  Sex: Female
  Weight: 47.2 kg

DRUGS (1)
  1. EXJADE [Suspect]
     Indication: MYELODYSPLASTIC SYNDROME
     Dosage: 2000 MG
     Route: 048
     Dates: start: 20100511, end: 20100706

REACTIONS (3)
  - DEATH [None]
  - ASTHENIA [None]
  - MENTAL STATUS CHANGES [None]
